FAERS Safety Report 16278180 (Version 1)
Quarter: 2019Q2

REPORT INFORMATION
  Report Type: Report from Study
  Country: US (occurrence: US)
  Receive Date: 20190506
  Receipt Date: 20190506
  Transmission Date: 20190711
  Serious: Yes (Hospitalization)
  Sender: FDA-Public Use
  Company Number: US-PFIZER INC-2019184767

PATIENT
  Age: 17 Year
  Sex: Female
  Weight: 52.1 kg

DRUGS (11)
  1. METHOTREXATE SODIUM. [Suspect]
     Active Substance: METHOTREXATE SODIUM
     Dosage: 3000 MG/M2, CYCLIC(OVER 3 HOURS ON DAY 1; CYCLES 1, 3 AND 5 (CYCLE= 21 DAYS))
     Route: 042
  2. DEXAMETHASONE. [Suspect]
     Active Substance: DEXAMETHASONE
     Dosage: 5 MG/M2, CYCLIC(BID ON DAYS 1-5; CYCLES 2, 4 AND 6 (CYCLE= 21 DAYS))
     Route: 048
  3. DEXAMETHASONE. [Suspect]
     Active Substance: DEXAMETHASONE
     Dosage: 5 MG/M2, CYCLIC(BID ON DAYS 1-5; CYCLES 1, 3 AND 5 (CYCLE= 21 DAYS))
     Route: 048
  4. METHOTREXATE SODIUM. [Suspect]
     Active Substance: METHOTREXATE SODIUM
     Dosage: 3000 MG/M2, CYCLIC(OVER 3 HOURS ON DAY 1; CYCLES 2, 4 AND 6 (CYCLE= 21 DAYS))
     Route: 042
  5. CRIZOTINIB [Suspect]
     Active Substance: CRIZOTINIB
     Indication: ANAPLASTIC LARGE CELL LYMPHOMA T- AND NULL-CELL TYPES
     Dosage: 165 MG/M2, CYCLIC (BID, ON DAYS 1-21; CYCLES 1, 3 AND 5 (CYCLE= 21 DAYS))
     Route: 048
  6. CYCLOPHOSPHAMIDE. [Suspect]
     Active Substance: CYCLOPHOSPHAMIDE
     Dosage: 200 MG/M2, CYCLIC(OVER 15-30 MINUTES ON DAYS 1-5; CYCLES 2, 4 AND 6 (CYCLE= 21 DAYS))
     Route: 042
  7. METHOTREXATE SODIUM. [Suspect]
     Active Substance: METHOTREXATE SODIUM
     Indication: ANAPLASTIC LARGE CELL LYMPHOMA T- AND NULL-CELL TYPES
     Dosage: UNK, CYCLIC(7.5-12MG IT ON DAY 1 (AGE BASED DOSING); PROPHASE(CYCLE = 5 DAYS))
     Route: 037
  8. CYCLOPHOSPHAMIDE. [Suspect]
     Active Substance: CYCLOPHOSPHAMIDE
     Indication: ANAPLASTIC LARGE CELL LYMPHOMA T- AND NULL-CELL TYPES
     Dosage: 200 MG/M2, CYCLIC(OVER 15-30 MINUTES ON DAYS 1 AND 2; PROPHASE(CYCLE = 5 DAYS))
     Route: 042
  9. DEXAMETHASONE. [Suspect]
     Active Substance: DEXAMETHASONE
     Indication: ANAPLASTIC LARGE CELL LYMPHOMA T- AND NULL-CELL TYPES
     Dosage: 5 MG/M2, CYCLIC(QD ON DAYS 1-2, AND 5MG/M2 PO BID ON DAYS 3-5; PROPHASE(CYCLE = 5 DAYS)
     Route: 048
  10. CRIZOTINIB [Suspect]
     Active Substance: CRIZOTINIB
     Dosage: 165 MG/M2, CYCLIC(BID ON DAYS 1-21; CYCLES 2, 4 AND 6 (CYCLE= 21 DAYS))
     Route: 048
  11. DOXORUBICIN HCL [Suspect]
     Active Substance: DOXORUBICIN HYDROCHLORIDE
     Indication: ANAPLASTIC LARGE CELL LYMPHOMA T- AND NULL-CELL TYPES
     Dosage: 25 MG/M2, CYCLIC(OVER 1-15 MIN ON DAYS 4 AND 5; CYCLES 2, 4 AND 6 (CYCLE= 21 DAYS))
     Route: 042

REACTIONS (1)
  - Dehydration [Recovering/Resolving]

NARRATIVE: CASE EVENT DATE: 20180814
